FAERS Safety Report 6366698-6 (Version None)
Quarter: 2009Q3

REPORT INFORMATION
  Report Type: 
  Country: None (occurrence: None)
  Receive Date: 20090921
  Receipt Date: 20080922
  Transmission Date: 20100115
  Serious: Yes (Disabling, Other)
  Sender: FDA-Public Use
  Company Number: DK-PFIZER INC-2007053849

PATIENT
  Age: 57 Year

DRUGS (6)
  1. CABASER [Suspect]
     Indication: PARKINSON'S DISEASE
     Dosage: UNK
     Route: 048
     Dates: start: 20021119, end: 20070426
  2. STOCRIN [Concomitant]
     Route: 048
  3. COMBIVIR [Concomitant]
     Route: 048
  4. ACETYLSALICYLIC ACID [Concomitant]
     Route: 048
  5. MADOPAR [Concomitant]
     Route: 048
     Dates: start: 19950609
  6. COMTESS [Concomitant]
     Route: 048
     Dates: start: 20000316

REACTIONS (2)
  - AORTIC VALVE SCLEROSIS [None]
  - BLINDNESS TRANSIENT [None]
